FAERS Safety Report 8543685-0 (Version None)
Quarter: 2012Q3

REPORT INFORMATION
  Report Type: 
  Country: None (occurrence: None)
  Receive Date: 20120719
  Receipt Date: 20120719
  Transmission Date: 20120928
  Serious: Yes (Other)
  Sender: FDA-Public Use
  Company Number: None

PATIENT
  Sex: Male

DRUGS (10)
  1. CARDVEDRILOL [Concomitant]
     Dosage: 6.5MG TWICE A DAY
  2. LEXAPRO [Concomitant]
     Dosage: 10MG ONCE A DAY
  3. MEXITEL 150 MG [Concomitant]
     Dosage: 150MG 4 TIMES A DAY
  4. ADVAIR DISKUS 500/50 [Suspect]
     Indication: COUGH
     Dosage: 500- 50  TWICE A DAY PO
     Route: 048
     Dates: start: 20120717, end: 20120718
  5. ADVAIR DISKUS 500/50 [Suspect]
     Indication: DYSPNOEA
     Dosage: 500- 50  TWICE A DAY PO
     Route: 048
     Dates: start: 20120717, end: 20120718
  6. ASPIRIN [Concomitant]
  7. ZOCOR [Concomitant]
     Dosage: ONCE A DAY
  8. ACOPT 1% [Concomitant]
  9. PRILOSEC [Concomitant]
  10. FLOMAX [Concomitant]
     Dosage: .4 MG ONCE A DAY

REACTIONS (1)
  - VISION BLURRED [None]
